FAERS Safety Report 11164546 (Version 1)
Quarter: 2015Q2

REPORT INFORMATION
  Report Type: Report from Study
  Country: BR (occurrence: BR)
  Receive Date: 20150604
  Receipt Date: 20150604
  Transmission Date: 20150821
  Serious: Yes (Hospitalization, Other)
  Sender: FDA-Public Use
  Company Number: BR-ROCHE-1518807

PATIENT
  Age: 80 Year
  Sex: Female
  Weight: 79 kg

DRUGS (8)
  1. CARDIZEM [Concomitant]
     Active Substance: DILTIAZEM HYDROCHLORIDE
  2. OSCAL [Concomitant]
     Active Substance: CALCIUM CARBONATE
  3. MABTHERA [Suspect]
     Active Substance: RITUXIMAB
     Route: 042
     Dates: start: 20141212
  4. INDAPEN [Concomitant]
     Active Substance: INDAPAMIDE
  5. MABTHERA [Suspect]
     Active Substance: RITUXIMAB
     Indication: RHEUMATOID ARTHRITIS
     Dosage: LAST DOSE OF RITUXIMAB TAKEN ON : 12/DEC/2014
     Route: 042
     Dates: start: 20131009
  6. SYNTHROID [Concomitant]
     Active Substance: LEVOTHYROXINE SODIUM
  7. PREDSIM [Concomitant]
     Active Substance: PREDNISOLONE
  8. MABTHERA [Suspect]
     Active Substance: RITUXIMAB
     Route: 042
     Dates: start: 20140507

REACTIONS (3)
  - Pneumonia [Unknown]
  - Bronchiectasis [Unknown]
  - Erysipelas [Recovered/Resolved]

NARRATIVE: CASE EVENT DATE: 201411
